FAERS Safety Report 7482510-6 (Version None)
Quarter: 2011Q2

REPORT INFORMATION
  Report Type: 
  Country: None (occurrence: None)
  Receive Date: 20110516
  Receipt Date: 20110405
  Transmission Date: 20111010
  Serious: Yes (Hospitalization, Other)
  Sender: FDA-Public Use
  Company Number: US-BAYER-201039151NA

PATIENT
  Age: 26 Year
  Sex: Female
  Weight: 68.027 kg

DRUGS (5)
  1. YAZ [Suspect]
     Indication: ACNE
     Dosage: UNK
     Route: 048
     Dates: start: 20060101, end: 20070101
  2. VICODIN [Concomitant]
  3. CYMBALTA [Concomitant]
  4. YAZ [Suspect]
     Indication: PREMENSTRUAL SYNDROME
  5. DEPO-PROVERA [Concomitant]

REACTIONS (3)
  - CHOLECYSTITIS [None]
  - GALLBLADDER DISORDER [None]
  - PAIN [None]
